FAERS Safety Report 7427532-6 (Version None)
Quarter: 2011Q2

REPORT INFORMATION
  Report Type: 
  Country: None (occurrence: None)
  Receive Date: 20110420
  Receipt Date: 20110328
  Transmission Date: 20111010
  Serious: No
  Sender: FDA-Public Use
  Company Number: US-B.I. PHARMACEUTICALS,INC./RIDGEFIELD-2011-BP-09455BP

PATIENT
  Sex: Female

DRUGS (5)
  1. SPIRIVA [Suspect]
     Indication: ASTHMA
     Dosage: 18 MCG
     Route: 055
     Dates: start: 20101201
  2. ALLERGY SERUM [Concomitant]
     Indication: SEASONAL ALLERGY
     Route: 048
  3. ESTERASE HORMONES [Concomitant]
     Route: 048
  4. RESTASIS [Concomitant]
     Indication: DRY EYE
     Route: 031
  5. PATADAY [Concomitant]
     Indication: GLAUCOMA
     Route: 031

REACTIONS (3)
  - OROPHARYNGEAL PAIN [None]
  - APHONIA [None]
  - DRY THROAT [None]
